FAERS Safety Report 8587141-2 (Version None)
Quarter: 2012Q3

REPORT INFORMATION
  Report Type: 
  Country: None (occurrence: None)
  Receive Date: 20120810
  Receipt Date: 20120730
  Transmission Date: 20120928
  Serious: No
  Sender: FDA-Public Use
  Company Number: US-ASTRAZENECA-2012SE53819

PATIENT
  Age: 56 Year
  Sex: Female
  Weight: 106.6 kg

DRUGS (3)
  1. SYMBICORT [Suspect]
     Indication: CHRONIC OBSTRUCTIVE PULMONARY DISEASE
     Dosage: 160/4.5 MCG UNKNOWN
     Route: 055
  2. SYMBICORT [Suspect]
     Indication: ASTHMA
     Dosage: 160/4.5 MCG UNKNOWN
     Route: 055
  3. ALBUTEROL [Concomitant]

REACTIONS (6)
  - COUGH [None]
  - BRONCHITIS [None]
  - PYREXIA [None]
  - DRUG DOSE OMISSION [None]
  - DYSPNOEA [None]
  - PULMONARY CONGESTION [None]
